FAERS Safety Report 7034862-9 (Version None)
Quarter: 2010Q4

REPORT INFORMATION
  Report Type: 
  Country: None (occurrence: None)
  Receive Date: 20101008
  Receipt Date: 20100930
  Transmission Date: 20110411
  Serious: Yes (Hospitalization)
  Sender: FDA-Public Use
  Company Number: DE-ROCHE-728993

PATIENT
  Age: 30 Year
  Sex: Male
  Weight: 100 kg

DRUGS (8)
  1. MYCOPHENOLATE MOFETIL [Suspect]
     Indication: IMMUNOSUPPRESSION
     Route: 065
  2. VALGANCICLOVIR HCL [Suspect]
     Indication: CYTOMEGALOVIRUS INFECTION
     Dosage: 2 TAB/DAY
     Route: 065
     Dates: start: 20071030, end: 20080224
  3. VALGANCICLOVIR HCL [Suspect]
     Route: 065
     Dates: start: 20080911, end: 20081123
  4. VALGANCICLOVIR HCL [Suspect]
     Route: 065
     Dates: start: 20081124, end: 20081215
  5. PROGRAF [Suspect]
     Indication: IMMUNOSUPPRESSION
     Route: 065
     Dates: start: 20080519, end: 20090205
  6. PANTOPRAZOLE [Concomitant]
  7. NEBIVOLOL [Concomitant]
  8. IRBESARTAN [Concomitant]

REACTIONS (1)
  - POLYURIA [None]
